FAERS Safety Report 21972220 (Version 1)
Quarter: 2023Q1

REPORT INFORMATION
  Report Type: Report from Study
  Country: PE (occurrence: PE)
  Receive Date: 20230209
  Receipt Date: 20230209
  Transmission Date: 20230418
  Serious: Yes (Other)
  Sender: FDA-Public Use
  Company Number: PE-002147023-NVSC2023PE012746

PATIENT
  Sex: Female
  Weight: 56 kg

DRUGS (3)
  1. COSENTYX [Suspect]
     Active Substance: SECUKINUMAB
     Indication: Psoriasis
     Dosage: 150 MG, QW (TWO WEEKLY DOSES OF 150MG/ SHE USED THE BIOLOGICAL LONGER THAN SIX MONTHS AGO)
     Route: 058
  2. COSENTYX [Suspect]
     Active Substance: SECUKINUMAB
     Dosage: 300 MG, QW
     Route: 058
     Dates: start: 202112, end: 20220801
  3. COSENTYX [Suspect]
     Active Substance: SECUKINUMAB
     Dosage: 300 MG, QW
     Route: 058
     Dates: start: 20230113

REACTIONS (2)
  - Urinary tract infection bacterial [Recovering/Resolving]
  - Clostridium difficile infection [Unknown]

NARRATIVE: CASE EVENT DATE: 20220101
